FAERS Safety Report 4807622-4 (Version None)
Quarter: 2005Q4

REPORT INFORMATION
  Report Type: 
  Country: None (occurrence: None)
  Receive Date: 20051020
  Receipt Date: 20051004
  Transmission Date: 20060501
  Serious: Yes (Hospitalization)
  Sender: FDA-Public Use
  Company Number: 8012516

PATIENT
  Age: 13 Year
  Sex: Male

DRUGS (6)
  1. METHYLPHENIDATE HCL [Suspect]
     Indication: ATTENTION DEFICIT/HYPERACTIVITY DISORDER
     Dosage: 36 MG /D
  2. METHYLPHENIDATE HCL [Suspect]
     Indication: ATTENTION DEFICIT/HYPERACTIVITY DISORDER
     Dosage: 54 MG /D
  3. FLUVOXAMINE MALEATE [Suspect]
     Dosage: 150 MG 2/D
  4. GUANFACINE HCL [Suspect]
     Dosage: 1 MG 2/D
  5. RISPERIDONE [Suspect]
     Indication: AGGRESSION
     Dosage: 0.5 MG 3/D
  6. RISPERIDONE [Suspect]
     Indication: TIC
     Dosage: 0.5 MG 3/D

REACTIONS (2)
  - EXTRAPYRAMIDAL DISORDER [None]
  - INTENTIONAL SELF-INJURY [None]
